FAERS Safety Report 18569217 (Version 1)
Quarter: 2020Q4

REPORT INFORMATION
  Report Type: Spontaneous
  Country: US (occurrence: US)
  Receive Date: 20201202
  Receipt Date: 20201202
  Transmission Date: 20210114
  Serious: Yes (Other)
  Sender: FDA-Public Use
  Company Number: None

PATIENT
  Age: 63 Year
  Sex: Female

DRUGS (1)
  1. ZEJULA [Suspect]
     Active Substance: NIRAPARIB
     Route: 048

REACTIONS (3)
  - Herpes zoster [None]
  - Staphylococcal infection [None]
  - Rash [None]

NARRATIVE: CASE EVENT DATE: 20201118
